FAERS Safety Report 23156530 (Version 1)
Quarter: 2023Q4

REPORT INFORMATION
  Report Type: Spontaneous
  Country: US (occurrence: US)
  Receive Date: 20231107
  Receipt Date: 20231107
  Transmission Date: 20240110
  Serious: No
  Sender: FDA-Public Use
  Company Number: US-COLLEGIUM PHARMACEUTICAL, INC.-20230600514

PATIENT

DRUGS (9)
  1. BELBUCA [Suspect]
     Active Substance: BUPRENORPHINE HYDROCHLORIDE
     Indication: Product used for unknown indication
     Dosage: 300 MICROGRAM, BID
     Route: 002
     Dates: start: 20230607
  2. BELBUCA [Suspect]
     Active Substance: BUPRENORPHINE HYDROCHLORIDE
     Dosage: 600 MICROGRAM, BID (EVERY 12 HOURS)
     Route: 002
     Dates: start: 20230613
  3. TAMSULOSIN [Concomitant]
     Active Substance: TAMSULOSIN
     Indication: Product used for unknown indication
     Dosage: UNK, UNKNOWN
     Route: 065
  4. MYRBETRIQ [Concomitant]
     Active Substance: MIRABEGRON
     Indication: Product used for unknown indication
     Dosage: UNK, UNKNOWN
     Route: 065
  5. GABAPENTIN [Concomitant]
     Active Substance: GABAPENTIN
     Indication: Product used for unknown indication
     Dosage: UNK, UNKNOWN
     Route: 065
  6. ZOLPIDEM [Concomitant]
     Active Substance: ZOLPIDEM TARTRATE
     Indication: Product used for unknown indication
     Dosage: UNK, UNKNOWN
     Route: 065
  7. NORTRIPTYLINE [Concomitant]
     Active Substance: NORTRIPTYLINE
     Indication: Product used for unknown indication
     Dosage: UNK, UNKNOWN
     Route: 065
  8. NICARDIPINE [Concomitant]
     Active Substance: NICARDIPINE
     Indication: Product used for unknown indication
     Dosage: UNK, UNKNOWN
     Route: 065
  9. TRELEGY ELLIPTA [Concomitant]
     Active Substance: FLUTICASONE FUROATE\UMECLIDINIUM BROMIDE\VILANTEROL TRIFENATATE
     Indication: Product used for unknown indication
     Dosage: UNK, UNKNOWN
     Route: 065

REACTIONS (2)
  - Drug titration error [Unknown]
  - Pain [Unknown]

NARRATIVE: CASE EVENT DATE: 20230601
